FAERS Safety Report 8622531-0 (Version None)
Quarter: 2012Q3

REPORT INFORMATION
  Report Type: 
  Country: None (occurrence: None)
  Receive Date: 20120827
  Receipt Date: 20120825
  Transmission Date: 20120928
  Serious: No
  Sender: FDA-Public Use
  Company Number: US-PFIZER INC-2012208857

PATIENT
  Age: 59 Year
  Sex: Female
  Weight: 77.098 kg

DRUGS (3)
  1. CHANTIX [Suspect]
     Dosage: 1 MG, DAILY
     Route: 048
     Dates: start: 20120801
  2. CHANTIX [Suspect]
     Indication: SMOKING CESSATION THERAPY
     Dosage: 0.5 MG, DAILY
     Route: 048
     Dates: start: 20120814, end: 20120801
  3. CHANTIX [Suspect]
     Dosage: 1 MG, 2X/DAY
     Route: 048
     Dates: start: 20120801, end: 20120801

REACTIONS (3)
  - HEADACHE [None]
  - LIP DISORDER [None]
  - LIMB DISCOMFORT [None]
